FAERS Safety Report 10308107 (Version 1)
Quarter: 2014Q3

REPORT INFORMATION
  Report Type: Spontaneous
  Country: JP (occurrence: None)
  Receive Date: 20140711
  Receipt Date: 20140711
  Transmission Date: 20150326
  Serious: Yes (Hospitalization)
  Sender: FDA-Public Use
  Company Number: FK201402697

PATIENT
  Age: 77 Year
  Sex: Male

DRUGS (2)
  1. LEUCOVORIN CALCIUM (MANUFACTURER UNKNOWN) (LEUCOVORIN CALCIUM) (LEUCOVORIN CALCIUM) [Suspect]
     Active Substance: LEUCOVORIN CALCIUM
     Indication: COLON CANCER STAGE III
     Dosage: 75 MG, D
  2. UFT [Suspect]
     Active Substance: TEGAFUR\URACIL
     Indication: COLON CANCER STAGE III
     Dosage: 400 MG, D

REACTIONS (7)
  - Hypoalbuminaemia [None]
  - Fatigue [None]
  - Pyrexia [None]
  - Diarrhoea [None]
  - Clostridium difficile colitis [None]
  - Decreased appetite [None]
  - Generalised oedema [None]
